FAERS Safety Report 5903797-4 (Version None)
Quarter: 2008Q3

REPORT INFORMATION
  Report Type: 
  Country: None (occurrence: None)
  Receive Date: 20080930
  Receipt Date: 20080925
  Transmission Date: 20090109
  Serious: Yes (Hospitalization)
  Sender: FDA-Public Use
  Company Number: JP-ABBOTT-06P-087-0351660-00

PATIENT
  Sex: Male

DRUGS (19)
  1. NORVIR [Suspect]
     Indication: HIV INFECTION
     Route: 048
     Dates: start: 20050929
  2. ATAZANAVIR SULFATE [Suspect]
     Indication: HIV INFECTION
     Route: 048
     Dates: start: 20050929
  3. LAMIVUDINE/ABACAVIR [Suspect]
     Indication: HIV INFECTION
     Route: 048
     Dates: start: 20050929
  4. LISINOPRIL [Concomitant]
     Indication: HYPERTENSION
     Route: 048
     Dates: start: 20051020, end: 20051205
  5. LISINOPRIL [Concomitant]
     Route: 048
     Dates: start: 20051206
  6. BENIDIPINE HYDROCHLORIDE [Concomitant]
     Indication: HYPERTENSION
     Route: 048
     Dates: start: 20051227, end: 20060109
  7. FUROSEMIDE [Concomitant]
     Indication: HYPERTENSION
     Route: 048
     Dates: start: 20060110, end: 20060201
  8. METOPROLOL TARTRATE [Concomitant]
     Indication: HYPERTENSION
     Route: 048
     Dates: start: 20051228, end: 20060201
  9. LOSARTAN POTASSIUM [Concomitant]
     Indication: HYPERTENSION
     Route: 048
     Dates: start: 20060124, end: 20060201
  10. NITRENDIPINE [Concomitant]
     Indication: HYPERTENSION
     Route: 048
     Dates: start: 20060202, end: 20060205
  11. NITRENDIPINE [Concomitant]
     Route: 048
     Dates: start: 20060206
  12. CANDESARTAN CILEXETIL [Concomitant]
     Indication: HYPERTENSION
     Route: 048
     Dates: start: 20060202
  13. BROTIZOLAM [Concomitant]
     Indication: INSOMNIA
     Route: 048
     Dates: start: 20041209
  14. URSODEOXYCHOLIC ACID [Concomitant]
     Indication: LIVER DISORDER
     Route: 048
     Dates: start: 20050804, end: 20060123
  15. OMEPRAZOLE [Concomitant]
     Indication: CEREBROVASCULAR ACCIDENT PROPHYLAXIS
     Route: 048
     Dates: start: 20051119
  16. RANITIDINE [Concomitant]
     Indication: PROPHYLAXIS
     Route: 048
     Dates: start: 20070215, end: 20070513
  17. RANITIDINE [Concomitant]
     Indication: GASTROINTESTINAL HAEMORRHAGE
  18. PREDNISOLONE SODIUM PHOSPHATE [Concomitant]
     Indication: AUTOIMMUNE HEPATITIS
     Route: 048
     Dates: start: 20060714
  19. AZATHIOPRINE [Concomitant]
     Indication: AUTOIMMUNE HEPATITIS
     Route: 048
     Dates: start: 20070607

REACTIONS (10)
  - BLOOD BILIRUBIN INCREASED [None]
  - CEREBRAL INFARCTION [None]
  - DIABETES MELLITUS [None]
  - GAIT DISTURBANCE [None]
  - HEPATIC FUNCTION ABNORMAL [None]
  - HYPERLIPIDAEMIA [None]
  - LACUNAR INFARCTION [None]
  - MEMORY IMPAIRMENT [None]
  - MOVEMENT DISORDER [None]
  - SPINAL COMPRESSION FRACTURE [None]
